FAERS Safety Report 6295775-3 (Version None)
Quarter: 2009Q3

REPORT INFORMATION
  Report Type: 
  Country: None (occurrence: None)
  Receive Date: 20090804
  Receipt Date: 20090804
  Transmission Date: 20100115
  Serious: Yes (Death)
  Sender: FDA-Public Use
  Company Number: US-PFIZER INC-2009220638

PATIENT
  Sex: Female
  Weight: 86.182 kg

DRUGS (2)
  1. SUTENT [Suspect]
     Route: 048
     Dates: start: 20090513
  2. INSULIN INJECTION [Concomitant]

REACTIONS (3)
  - DEATH [None]
  - DISEASE PROGRESSION [None]
  - HEPATIC NEOPLASM MALIGNANT [None]
